FAERS Safety Report 7641336-0 (Version None)
Quarter: 2011Q3

REPORT INFORMATION
  Report Type: 
  Country: None (occurrence: None)
  Receive Date: 20110728
  Receipt Date: 20110727
  Transmission Date: 20111222
  Serious: Yes (Hospitalization)
  Sender: FDA-Public Use
  Company Number: US-PFIZER INC-2011171212

PATIENT
  Sex: Female
  Weight: 69 kg

DRUGS (4)
  1. NORVASC [Suspect]
     Dosage: 2.5 MG, DAILY
     Route: 048
  2. NORVASC [Suspect]
     Indication: HYPERTENSION
     Dosage: 5 MG, DAILY
     Route: 048
     Dates: start: 20100101
  3. NORVASC [Suspect]
     Dosage: UNK
     Route: 048
  4. PRAVASTATIN [Concomitant]
     Dosage: UNK

REACTIONS (3)
  - DIVERTICULITIS [None]
  - PAIN IN EXTREMITY [None]
  - OEDEMA [None]
